FAERS Safety Report 21513648 (Version 1)
Quarter: 2022Q4

REPORT INFORMATION
  Report Type: Spontaneous
  Country: US (occurrence: US)
  Receive Date: 20221027
  Receipt Date: 20221027
  Transmission Date: 20230112
  Serious: No
  Sender: FDA-Public Use
  Company Number: US-GSKCCFUS-Case-01533412_AE-86875

PATIENT
  Sex: Female

DRUGS (1)
  1. BREO ELLIPTA [Suspect]
     Active Substance: FLUTICASONE FUROATE\VILANTEROL TRIFENATATE
     Indication: Product used for unknown indication
     Dosage: UNK 200
     Dates: start: 2022, end: 2022

REACTIONS (2)
  - Dysphonia [Recovered/Resolved]
  - Vocal cord atrophy [Not Recovered/Not Resolved]

NARRATIVE: CASE EVENT DATE: 20220101
